FAERS Safety Report 5216219-6 (Version None)
Quarter: 2007Q1

REPORT INFORMATION
  Report Type: 
  Country: None (occurrence: None)
  Receive Date: 20070123
  Receipt Date: 20070117
  Transmission Date: 20070707
  Serious: Yes (Other)
  Sender: FDA-Public Use
  Company Number: DE-SHR-DE-2006-035724

PATIENT
  Age: 68 Year
  Sex: Female

DRUGS (1)
  1. ULTRAVIST 300 [Suspect]
     Dosage: 50 ML, 1 DOSE
     Route: 042
     Dates: start: 20030428, end: 20030428

REACTIONS (2)
  - NEUROPATHY PERIPHERAL [None]
  - PERIPHERAL NERVE INJURY [None]
